FAERS Safety Report 16474221 (Version 1)
Quarter: 2019Q3

REPORT INFORMATION
  Report Type: Spontaneous
  Country: US (occurrence: US)
  Receive Date: 20190624
  Receipt Date: 20190624
  Transmission Date: 20191004
  Serious: Yes (Disabling)
  Sender: FDA-Public Use
  Company Number: None

PATIENT
  Age: 38 Year
  Sex: Male
  Weight: 99 kg

DRUGS (1)
  1. LEXAPRO [Suspect]
     Active Substance: ESCITALOPRAM OXALATE
     Indication: INSOMNIA
     Dosage: ?          QUANTITY:1 TABLET(S);?

REACTIONS (7)
  - Drug ineffective [None]
  - Hallucination [None]
  - Disorientation [None]
  - Nervous system disorder [None]
  - Abdominal adhesions [None]
  - Confusional state [None]
  - Irritability [None]

NARRATIVE: CASE EVENT DATE: 20160101
